FAERS Safety Report 16357621 (Version 2)
Quarter: 2019Q3

REPORT INFORMATION
  Report Type: Spontaneous
  Country: US (occurrence: US)
  Receive Date: 20190527
  Receipt Date: 20190903
  Transmission Date: 20191004
  Serious: No
  Sender: FDA-Public Use
  Company Number: US-CELGENEUS-USA-20190506816

PATIENT
  Sex: Male

DRUGS (1)
  1. REVLIMID [Suspect]
     Active Substance: LENALIDOMIDE
     Indication: PLASMA CELL MYELOMA
     Dosage: 10 MILLIGRAM
     Route: 048
     Dates: start: 201903

REACTIONS (4)
  - Increased tendency to bruise [Unknown]
  - Constipation [Unknown]
  - Neuropathy peripheral [Unknown]
  - Dry skin [Unknown]

NARRATIVE: CASE EVENT DATE: 2019
